FAERS Safety Report 24674803 (Version 2)
Quarter: 2025Q2

REPORT INFORMATION
  Report Type: Spontaneous
  Country: GB (occurrence: GB)
  Receive Date: 20241128
  Receipt Date: 20250416
  Transmission Date: 20250716
  Serious: Yes (Other)
  Sender: TEVA
  Company Number: GB-TEVA-VS-3268479

PATIENT
  Age: 35 Year
  Sex: Male

DRUGS (11)
  1. PANTOPRAZOLE [Suspect]
     Active Substance: PANTOPRAZOLE
     Indication: Bile acid malabsorption
     Route: 065
  2. LOPERAMIDE [Suspect]
     Active Substance: LOPERAMIDE
     Indication: Bile acid malabsorption
     Route: 065
  3. LIRAGLUTIDE [Suspect]
     Active Substance: LIRAGLUTIDE
     Indication: Frequent bowel movements
     Route: 065
  4. LIRAGLUTIDE [Suspect]
     Active Substance: LIRAGLUTIDE
     Indication: Frequent bowel movements
     Route: 065
  5. LIRAGLUTIDE [Suspect]
     Active Substance: LIRAGLUTIDE
     Indication: Frequent bowel movements
     Dosage: 0.6MG INCREMENTS EACH WEEK TO A FINAL DOSE
     Route: 065
  6. CIPROFLOXACIN [Suspect]
     Active Substance: CIPROFLOXACIN
     Indication: Gastrointestinal microorganism overgrowth
     Route: 065
  7. RIFAXIMIN [Suspect]
     Active Substance: RIFAXIMIN
     Indication: Gastrointestinal microorganism overgrowth
     Route: 065
  8. CHOLESTYRAMINE [Suspect]
     Active Substance: CHOLESTYRAMINE
     Indication: Bile acid malabsorption
     Route: 065
     Dates: start: 2019, end: 2023
  9. COLESEVELAM [Suspect]
     Active Substance: COLESEVELAM
     Indication: Bile acid malabsorption
     Route: 065
     Dates: start: 2019, end: 2023
  10. METRONIDAZOLE [Suspect]
     Active Substance: METRONIDAZOLE
     Indication: Gastrointestinal microorganism overgrowth
     Route: 065
  11. DOXYCYCLINE [Suspect]
     Active Substance: DOXYCYCLINE
     Indication: Gastrointestinal microorganism overgrowth
     Route: 065

REACTIONS (3)
  - Nausea [Recovered/Resolved]
  - Drug ineffective [Unknown]
  - Weight decreased [Recovered/Resolved]
